FAERS Safety Report 19800135 (Version 1)
Quarter: 2021Q3

REPORT INFORMATION
  Report Type: Report from Study
  Country: None (occurrence: US)
  Receive Date: 20210908
  Receipt Date: 20210908
  Transmission Date: 20211014
  Serious: Yes (Other)
  Sender: FDA-Public Use
  Company Number: BR-ABBVIE-21P-020-4069215-00

PATIENT
  Sex: Female
  Weight: 29 kg

DRUGS (4)
  1. DEPAKENE [Suspect]
     Active Substance: VALPROIC ACID
     Indication: EPILEPSY
     Route: 065
     Dates: end: 201906
  2. DEPAKOTE [Suspect]
     Active Substance: DIVALPROEX SODIUM
     Indication: EPILEPSY
     Dosage: DAILY DOSE 750 MILLIGRAM, 250MG IN THE MORNING AND 500MG AT NIGHT, CHANGED TO DEPAKOTE ER.
     Route: 065
  3. ETIRA [Concomitant]
     Active Substance: LEVETIRACETAM
     Indication: ADJUVANT THERAPY
     Dosage: IN THE MORNING, AT NIGHT
     Route: 048
     Dates: start: 2020
  4. ETIRA [Concomitant]
     Active Substance: LEVETIRACETAM
     Indication: EPILEPSY

REACTIONS (7)
  - Product use issue [Unknown]
  - Mood swings [Recovered/Resolved]
  - Petit mal epilepsy [Recovered/Resolved]
  - Muscle spasms [Recovered/Resolved]
  - Anger [Recovered/Resolved]
  - Urinary tract infection [Unknown]
  - Drug ineffective [Recovered/Resolved]
